FAERS Safety Report 6631872-8 (Version None)
Quarter: 2010Q1

REPORT INFORMATION
  Report Type: 
  Country: None (occurrence: None)
  Receive Date: 20100312
  Receipt Date: 20100308
  Transmission Date: 20100710
  Serious: Yes (Life-Threatening, Hospitalization)
  Sender: FDA-Public Use
  Company Number: US-SANOFI-AVENTIS-2010SA013385

PATIENT
  Age: 64 Year
  Sex: Male
  Weight: 72 kg

DRUGS (5)
  1. CLOPIDOGREL BISULFATE [Suspect]
     Indication: CORONARY ARTERY DISEASE
     Route: 048
     Dates: start: 20091017, end: 20091017
  2. CLOPIDOGREL BISULFATE [Suspect]
     Route: 048
     Dates: start: 20091017, end: 20091017
  3. CLOPIDOGREL BISULFATE [Suspect]
     Route: 048
     Dates: start: 20091018, end: 20100216
  4. CLOPIDOGREL BISULFATE [Suspect]
     Route: 048
     Dates: start: 20091018, end: 20100216
  5. ACETYLSALICYLIC ACID [Concomitant]
     Indication: DRUG USE FOR UNKNOWN INDICATION
     Route: 065
     Dates: end: 20100216

REACTIONS (1)
  - GASTRIC CANCER [None]
